FAERS Safety Report 17356788 (Version 1)
Quarter: 2020Q1

REPORT INFORMATION
  Report Type: Other
  Country: US (occurrence: US)
  Receive Date: 20200131
  Receipt Date: 20200131
  Transmission Date: 20200409
  Serious: Yes (Hospitalization)
  Sender: FDA-Public Use
  Company Number: US-INTELLIPHARMACEUTICS CORP.-2079689

PATIENT
  Age: 67 Year
  Sex: Male

DRUGS (2)
  1. QUETIAPINE FUMARATE. [Suspect]
     Active Substance: QUETIAPINE FUMARATE
     Indication: DELIRIUM
     Route: 050
  2. HALOPERIDOL. [Suspect]
     Active Substance: HALOPERIDOL
     Route: 042

REACTIONS (2)
  - Parkinsonism [Recovered/Resolved]
  - Delirium [Recovered/Resolved]
